FAERS Safety Report 8963359 (Version 1)
Quarter: 2012Q4

REPORT INFORMATION
  Report Type: 
  Country: US (occurrence: US)
  Receive Date: 20121214
  Receipt Date: 20121214
  Transmission Date: 20130627
  Serious: Yes (Other)
  Sender: FDA-Public Use
  Company Number: US-BIOGENIDEC-2012BI057820

PATIENT
  Age: 50 Year
  Sex: Female

DRUGS (1)
  1. TYSABRI [Suspect]
     Indication: MULTIPLE SCLEROSIS
     Route: 042
     Dates: start: 20080403, end: 20090707

REACTIONS (6)
  - Hysterectomy [Unknown]
  - Pneumonia [Unknown]
  - Staphylococcal infection [Unknown]
  - Osteoarthritis [Unknown]
  - Excessive skin [Unknown]
  - Genital abscess [Unknown]
